FAERS Safety Report 15350459 (Version 5)
Quarter: 2019Q1

REPORT INFORMATION
  Report Type: Report from Study
  Country: BR (occurrence: BR)
  Receive Date: 20180905
  Receipt Date: 20190301
  Transmission Date: 20190417
  Serious: Yes (Other)
  Sender: FDA-Public Use
  Company Number: BR-BIOGEN-2017BI00358738

PATIENT
  Age: 53 Year
  Sex: Female

DRUGS (5)
  1. INSULIN [Concomitant]
     Active Substance: INSULIN NOS
     Indication: TYPE 2 DIABETES MELLITUS
     Route: 065
  2. VITAMIN D [Concomitant]
     Active Substance: CHOLECALCIFEROL
     Indication: PRODUCT USED FOR UNKNOWN INDICATION
     Route: 065
  3. FLUOXETINE [Concomitant]
     Active Substance: FLUOXETINE HYDROCHLORIDE
     Indication: PRODUCT USED FOR UNKNOWN INDICATION
     Route: 065
  4. TYSABRI [Suspect]
     Active Substance: NATALIZUMAB
     Indication: MULTIPLE SCLEROSIS
     Dosage: INFUSED OVER ONE HOUR
     Route: 042
     Dates: start: 20160412
  5. TYSABRI [Suspect]
     Active Substance: NATALIZUMAB
     Dosage: INFUSED OVER ONE HOUR
     Route: 042
     Dates: start: 201612, end: 201802

REACTIONS (20)
  - Ear infection [Unknown]
  - Asthenia [Recovered/Resolved]
  - Product dose omission [Unknown]
  - Diabetes mellitus [Unknown]
  - Nutritional condition abnormal [Unknown]
  - Cystitis [Recovered/Resolved]
  - Pain [Recovered/Resolved]
  - Stress [Recovered/Resolved]
  - Multiple sclerosis relapse [Recovered/Resolved]
  - Respiratory tract infection [Recovered/Resolved]
  - Sinusitis [Unknown]
  - Anaemia [Unknown]
  - Kidney infection [Recovered/Resolved]
  - Menstruation irregular [Recovered/Resolved]
  - Memory impairment [Unknown]
  - Rhinitis [Recovered/Resolved]
  - Weight decreased [Recovered/Resolved]
  - Decreased immune responsiveness [Unknown]
  - Uterine haemorrhage [Recovered/Resolved]
  - Depression [Unknown]

NARRATIVE: CASE EVENT DATE: 201802
